FAERS Safety Report 7290297-5 (Version None)
Quarter: 2011Q1

REPORT INFORMATION
  Report Type: 
  Country: None (occurrence: None)
  Receive Date: 20110208
  Receipt Date: 20110208
  Transmission Date: 20110831
  Serious: Yes (Other)
  Sender: FDA-Public Use
  Company Number: None

PATIENT
  Sex: Female
  Weight: 57.879 kg

DRUGS (1)
  1. WARFARIN SODIUM [Suspect]
     Indication: PULMONARY EMBOLISM
     Dosage: UP TO 25 MG DAILY PO
     Route: 048
     Dates: start: 20100918

REACTIONS (2)
  - DRUG INEFFECTIVE [None]
  - MALABSORPTION [None]
